FAERS Safety Report 15658849 (Version 2)
Quarter: 2018Q4

REPORT INFORMATION
  Report Type: Spontaneous
  Country: US (occurrence: US)
  Receive Date: 20181126
  Receipt Date: 20181127
  Transmission Date: 20190205
  Serious: Yes (Life-Threatening)
  Sender: FDA-Public Use
  Company Number: US-JNJFOC-20181122241

PATIENT
  Age: 22 Year
  Sex: Female

DRUGS (1)
  1. DIPHENHYDRAMINE HYDROCHLORIDE. [Suspect]
     Active Substance: DIPHENHYDRAMINE HYDROCHLORIDE
     Indication: PRODUCT USED FOR UNKNOWN INDICATION
     Route: 048

REACTIONS (8)
  - Blood lactic acid increased [Unknown]
  - Intentional overdose [Unknown]
  - Paraesthesia oral [Unknown]
  - Paraesthesia [Unknown]
  - Suicide attempt [Unknown]
  - Anticholinergic syndrome [Unknown]
  - Exposure during pregnancy [Unknown]
  - Foetal death [Recovered/Resolved]
